FAERS Safety Report 5245106-2 (Version None)
Quarter: 2007Q1

REPORT INFORMATION
  Report Type: 
  Country: None (occurrence: None)
  Receive Date: 20070223
  Receipt Date: 20070213
  Transmission Date: 20070707
  Serious: Yes (Other)
  Sender: FDA-Public Use
  Company Number: GB-BAYER-200710196BNE

PATIENT
  Sex: Male

DRUGS (4)
  1. ASPIRIN [Suspect]
  2. IBUPROFEN [Suspect]
  3. ALCOHOL [Suspect]
  4. SEROXAT [Suspect]

REACTIONS (4)
  - COMPLETED SUICIDE [None]
  - DRUG WITHDRAWAL SYNDROME [None]
  - MULTIPLE DRUG OVERDOSE [None]
  - SUICIDE ATTEMPT [None]
